FAERS Safety Report 4417042-2 (Version None)
Quarter: 2004Q2

REPORT INFORMATION
  Report Type: 
  Country: None (occurrence: None)
  Receive Date: 20040629
  Receipt Date: 20031222
  Transmission Date: 20050107
  Serious: No
  Sender: FDA-Public Use
  Company Number: US061727

PATIENT

DRUGS (1)
  1. ARANESP [Suspect]
     Indication: ANAEMIA
     Dosage: ONE TIME DOSE (SEE IMAGE)

REACTIONS (3)
  - ARTHRALGIA [None]
  - BACK PAIN [None]
  - NECK PAIN [None]
